FAERS Safety Report 6533041-9 (Version None)
Quarter: 2010Q1

REPORT INFORMATION
  Report Type: 
  Country: None (occurrence: None)
  Receive Date: 20100111
  Receipt Date: 20091230
  Transmission Date: 20100710
  Serious: Yes (Death, Hospitalization, Other)
  Sender: FDA-Public Use
  Company Number: US-PFIZER INC-2009254433

PATIENT
  Sex: Female

DRUGS (4)
  1. SUTENT [Suspect]
     Indication: METASTATIC RENAL CELL CARCINOMA
     Dosage: 25 MG, 2X/DAY
     Route: 048
     Dates: start: 20090618
  2. OXYCONTIN [Concomitant]
  3. ONDANSETRON [Concomitant]
  4. PROMETHAZINE [Concomitant]

REACTIONS (8)
  - ANAEMIA [None]
  - DEATH [None]
  - DYSPEPSIA [None]
  - DYSPNOEA [None]
  - GASTROINTESTINAL HAEMORRHAGE [None]
  - OESOPHAGITIS [None]
  - PULMONARY OEDEMA [None]
  - VOMITING [None]
